FAERS Safety Report 5276331-2 (Version None)
Quarter: 2007Q1

REPORT INFORMATION
  Report Type: 
  Country: None (occurrence: None)
  Receive Date: 20070326
  Receipt Date: 20070316
  Transmission Date: 20070707
  Serious: Yes (Other)
  Sender: FDA-Public Use
  Company Number: US-PFIZER INC-2007020603

PATIENT
  Sex: Female

DRUGS (6)
  1. PROVERA [Suspect]
     Indication: HORMONE REPLACEMENT THERAPY
     Route: 048
     Dates: start: 19930101, end: 20011101
  2. MEDROXYPROGESTERONE ACETATE SUSPENSION, STERILE [Suspect]
     Indication: HORMONE REPLACEMENT THERAPY
     Dates: start: 19930101, end: 20011101
  3. PREMARIN [Suspect]
     Indication: HORMONE REPLACEMENT THERAPY
     Dates: start: 19930101, end: 20011101
  4. PREMPHASE 14/14 [Suspect]
     Indication: HORMONE REPLACEMENT THERAPY
     Dates: start: 19930101, end: 20011101
  5. AYGESTIN [Suspect]
     Indication: HORMONE REPLACEMENT THERAPY
     Dates: start: 19930101, end: 20011101
  6. PROMETRIUM [Suspect]
     Indication: HORMONE REPLACEMENT THERAPY
     Dates: start: 19930101, end: 20011101

REACTIONS (1)
  - BREAST CANCER [None]
